FAERS Safety Report 5664929-9 (Version None)
Quarter: 2008Q1

REPORT INFORMATION
  Report Type: 
  Country: None (occurrence: None)
  Receive Date: 20080314
  Receipt Date: 20080305
  Transmission Date: 20080703
  Serious: Yes (Other)
  Sender: FDA-Public Use
  Company Number: GB-GILEAD-2008-0015545

PATIENT
  Age: 30 Year
  Sex: Male

DRUGS (2)
  1. TRUVADA [Suspect]
     Dates: start: 20060101
  2. EFAVIRENZ [Concomitant]
     Dates: start: 20060101

REACTIONS (1)
  - NEUROPATHY PERIPHERAL [None]
